FAERS Safety Report 4693106-3 (Version None)
Quarter: 2005Q2

REPORT INFORMATION
  Report Type: 
  Country: None (occurrence: None)
  Receive Date: 20050617
  Receipt Date: 20050524
  Transmission Date: 20051028
  Serious: Yes (Other)
  Sender: FDA-Public Use
  Company Number: 200515022GDDC

PATIENT
  Age: 34 Year
  Sex: Female

DRUGS (2)
  1. KETEK [Suspect]
     Indication: SINUSITIS
     Route: 048
     Dates: start: 20050523, end: 20050523
  2. CLARITIN-D [Concomitant]
     Route: 048
     Dates: start: 20050522, end: 20050523

REACTIONS (8)
  - DISORIENTATION [None]
  - DIZZINESS [None]
  - EYE PAIN [None]
  - HEADACHE [None]
  - LISTLESS [None]
  - NECK PAIN [None]
  - RESTLESSNESS [None]
  - VISION BLURRED [None]
